FAERS Safety Report 17108018 (Version 1)
Quarter: 2019Q4

REPORT INFORMATION
  Report Type: Spontaneous
  Country: US (occurrence: US)
  Receive Date: 20191204
  Receipt Date: 20191204
  Transmission Date: 20200122
  Serious: No
  Sender: FDA-Public Use
  Company Number: US-UCBSA-2017046318

PATIENT
  Sex: Female
  Weight: 28.1 kg

DRUGS (1)
  1. BRIVIACT [Suspect]
     Active Substance: BRIVARACETAM
     Indication: SEIZURE
     Dosage: UNK
     Dates: start: 2017

REACTIONS (4)
  - Retching [Recovering/Resolving]
  - Off label use [Unknown]
  - Depressed mood [Recovering/Resolving]
  - Restlessness [Recovering/Resolving]

NARRATIVE: CASE EVENT DATE: 2017
